FAERS Safety Report 9548885 (Version 3)
Quarter: 2013Q4

REPORT INFORMATION
  Report Type: Spontaneous
  Country: JP (occurrence: JP)
  Receive Date: 20130924
  Receipt Date: 20131004
  Transmission Date: 20140711
  Serious: Yes (Other)
  Sender: FDA-Public Use
  Company Number: JP-PFIZER INC-2013271261

PATIENT
  Age: 76 Year
  Sex: Female

DRUGS (3)
  1. LIPITOR [Suspect]
     Dosage: 10 MG, 1X/DAY
     Route: 048
     Dates: start: 201110, end: 20120410
  2. LIPITOR [Suspect]
     Dosage: UNK
     Route: 048
     Dates: start: 201306
  3. BAYASPIRIN [Concomitant]
     Dosage: UNK

REACTIONS (3)
  - Cerebral infarction [Unknown]
  - Myalgia [Unknown]
  - Myoglobin blood increased [Recovered/Resolved]
